FAERS Safety Report 15379309 (Version 3)
Quarter: 2018Q3

REPORT INFORMATION
  Report Type: Report from Study
  Country: US (occurrence: US)
  Receive Date: 20180913
  Receipt Date: 20180928
  Transmission Date: 20181010
  Serious: Yes (Death, Hospitalization, Other)
  Sender: FDA-Public Use
  Company Number: US-ASTELLAS-2018US038774

PATIENT
  Age: 72 Year
  Sex: Female

DRUGS (94)
  1. PALONOSETRON. [Concomitant]
     Active Substance: PALONOSETRON HYDROCHLORIDE
     Indication: PRODUCT USED FOR UNKNOWN INDICATION
     Dosage: 250 ?G, ONCE
     Route: 042
  2. POTASSIUM CHLORIDE. [Concomitant]
     Active Substance: POTASSIUM CHLORIDE
     Dosage: 20 MEQ, EVRY 1 HOUR
     Route: 042
     Dates: start: 20180731, end: 20180731
  3. POTASSIUM CHLORIDE. [Concomitant]
     Active Substance: POTASSIUM CHLORIDE
     Dosage: 40 MEQ, EVERY 2 HOUR
     Route: 042
     Dates: start: 20180813, end: 20180813
  4. SALINE                             /00075401/ [Concomitant]
     Active Substance: SODIUM CHLORIDE
     Indication: PRODUCT USED FOR UNKNOWN INDICATION
     Dosage: 500 ML, ONCE
     Route: 042
     Dates: start: 20180802, end: 20180802
  5. LEVALBUTEROL. [Concomitant]
     Active Substance: LEVALBUTEROL
     Indication: PRODUCT USED FOR UNKNOWN INDICATION
     Dosage: 0.63 MG,ONCE
     Route: 065
     Dates: start: 20180822, end: 20180822
  6. METHYLPREDNISOLONE. [Concomitant]
     Active Substance: METHYLPREDNISOLONE
     Dosage: 80 MG, ONCE
     Route: 042
     Dates: start: 20180819, end: 20180819
  7. POTASSIUM CHLORIDE. [Concomitant]
     Active Substance: POTASSIUM CHLORIDE
     Dosage: 30 MEQ, ONCE
     Route: 048
     Dates: start: 20180806, end: 20180806
  8. FAMOTIDINE. [Concomitant]
     Active Substance: FAMOTIDINE
     Indication: DYSPEPSIA
     Route: 048
     Dates: start: 20170807, end: 20180821
  9. TACROLIMUS. [Concomitant]
     Active Substance: TACROLIMUS
     Indication: IMMUNOSUPPRESSION
     Dosage: 0.5 MG, ONCE DAILY
     Route: 042
     Dates: start: 20180726, end: 20180728
  10. TACROLIMUS. [Concomitant]
     Active Substance: TACROLIMUS
     Dosage: 0.6 MG, ONCE DAILY
     Route: 042
     Dates: start: 20180810, end: 20180810
  11. CALCIUM CARBONATE. [Concomitant]
     Active Substance: CALCIUM CARBONATE
     Indication: PRODUCT USED FOR UNKNOWN INDICATION
     Route: 048
     Dates: start: 20180813, end: 20180822
  12. POTASSIUM CHLORIDE. [Concomitant]
     Active Substance: POTASSIUM CHLORIDE
     Dosage: 20 MEQ, EVRY 1 HOUR
     Route: 042
     Dates: start: 20180801, end: 20180801
  13. POTASSIUM CHLORIDE. [Concomitant]
     Active Substance: POTASSIUM CHLORIDE
     Dosage: 20 MEQ, EVRY 1 HOUR
     Route: 042
     Dates: start: 20180822, end: 20180822
  14. METHOTREXATE. [Concomitant]
     Active Substance: METHOTREXATE
     Dosage: 9 MG, ONCE
     Route: 042
     Dates: start: 20180731, end: 20180731
  15. METHOTREXATE. [Concomitant]
     Active Substance: METHOTREXATE
     Dosage: 9 MG, ONCE
     Route: 042
     Dates: start: 20180805, end: 20180805
  16. PANTOPRAZOLE [Concomitant]
     Active Substance: PANTOPRAZOLE
     Indication: GASTROOESOPHAGEAL REFLUX DISEASE
     Route: 048
     Dates: start: 20180721
  17. CIPROFLOXACIN. [Concomitant]
     Active Substance: CIPROFLOXACIN
     Route: 042
     Dates: start: 20180730, end: 20180814
  18. TACROLIMUS. [Concomitant]
     Active Substance: TACROLIMUS
     Indication: GRAFT VERSUS HOST DISEASE
     Route: 042
     Dates: start: 20180725, end: 20180725
  19. TACROLIMUS. [Concomitant]
     Active Substance: TACROLIMUS
     Dosage: 0.5 MG, ONCE DAILY
     Route: 042
     Dates: start: 20180809, end: 20180809
  20. FILGRASTIM [Concomitant]
     Active Substance: FILGRASTIM
     Indication: PRODUCT USED FOR UNKNOWN INDICATION
     Route: 058
     Dates: start: 20180801, end: 20180821
  21. SUCRALFATE. [Concomitant]
     Active Substance: SUCRALFATE
     Dosage: 1G/10ML, EVERY 6 HOURS
     Route: 048
     Dates: start: 20180822, end: 20180825
  22. LOPERAMIDE [Concomitant]
     Active Substance: LOPERAMIDE
     Indication: DIARRHOEA
     Dosage: 2 MG, EVERY 6 HOURS AS NEEDED
     Route: 048
     Dates: start: 20180822, end: 20180825
  23. ISAVUCONAZOLE [Suspect]
     Active Substance: ISAVUCONAZOLE
     Indication: ANTIFUNGAL PROPHYLAXIS
     Route: 042
     Dates: start: 20180804, end: 20180814
  24. POTASSIUM CHLORIDE. [Concomitant]
     Active Substance: POTASSIUM CHLORIDE
     Dosage: 40 MEQ, EVERY 4 HOUR
     Route: 042
     Dates: start: 20180826, end: 20180826
  25. METHOTREXATE. [Concomitant]
     Active Substance: METHOTREXATE
     Dosage: 9 MG, ONCE
     Route: 042
     Dates: start: 20180728, end: 20180728
  26. URSODIOL. [Concomitant]
     Active Substance: URSODIOL
     Indication: PROPHYLAXIS
     Route: 048
     Dates: start: 20180720
  27. PANTOPRAZOLE [Concomitant]
     Active Substance: PANTOPRAZOLE
     Route: 048
     Dates: start: 20180822, end: 20180825
  28. TACROLIMUS. [Concomitant]
     Active Substance: TACROLIMUS
     Dosage: 0.9 MG, ONCE DAILY
     Route: 042
     Dates: start: 20180814, end: 20180814
  29. TACROLIMUS. [Concomitant]
     Active Substance: TACROLIMUS
     Dosage: 0.7 MG, ONCE DAILY
     Route: 042
     Dates: start: 20180817, end: 20180817
  30. LEUCOVORIN                         /00566701/ [Concomitant]
     Active Substance: LEUCOVORIN
     Indication: PRODUCT USED FOR UNKNOWN INDICATION
     Route: 042
  31. TOBRAMYCIN AND DEXAMETHASONE [Concomitant]
     Active Substance: DEXAMETHASONE\TOBRAMYCIN
     Indication: PRODUCT USED FOR UNKNOWN INDICATION
     Dosage: 0.3 %, EVERY 12 HOURS
     Route: 047
     Dates: start: 20180806, end: 20180819
  32. BENZOCAINE/MENTHOL [Concomitant]
     Indication: PRODUCT USED FOR UNKNOWN INDICATION
     Route: 048
     Dates: start: 20180814, end: 20180814
  33. ZOFRAN [Concomitant]
     Active Substance: ONDANSETRON HYDROCHLORIDE
     Indication: NAUSEA
  34. POTASSIUM CHLORIDE. [Concomitant]
     Active Substance: POTASSIUM CHLORIDE
     Dosage: 40 MEQ, EVERY 1 HOUR
     Route: 042
     Dates: start: 20180804, end: 20180804
  35. SALINE                             /00075401/ [Concomitant]
     Active Substance: SODIUM CHLORIDE
     Dosage: 1000 ML, ONCE
     Route: 042
     Dates: start: 20180823, end: 20180823
  36. POTASSIUM CHLORIDE. [Concomitant]
     Active Substance: POTASSIUM CHLORIDE
     Dosage: 40 MEQ, ONCE
     Route: 048
     Dates: start: 20180809, end: 20180809
  37. POTASSIUM CHLORIDE. [Concomitant]
     Active Substance: POTASSIUM CHLORIDE
     Dosage: 20 MEQ, ONCE
     Route: 048
     Dates: start: 20180811, end: 20180811
  38. METHOTREXATE. [Concomitant]
     Active Substance: METHOTREXATE
     Indication: PRODUCT USED FOR UNKNOWN INDICATION
     Dosage: 9 MG, ONCE
     Route: 042
     Dates: start: 20180726, end: 20180726
  39. FOLIC ACID. [Concomitant]
     Active Substance: FOLIC ACID
     Route: 048
     Dates: start: 20180820
  40. DIPHENHYDRAMINE. [Concomitant]
     Active Substance: DIPHENHYDRAMINE
     Indication: PRODUCT USED FOR UNKNOWN INDICATION
     Route: 042
     Dates: start: 20180725, end: 20180725
  41. URSODIOL. [Concomitant]
     Active Substance: URSODIOL
     Route: 048
     Dates: start: 20180822, end: 20180825
  42. VANCOMYCIN [Concomitant]
     Active Substance: VANCOMYCIN
     Indication: PRODUCT USED FOR UNKNOWN INDICATION
     Route: 065
     Dates: start: 20170721, end: 20180821
  43. MAGNESIUM AMINO ACID CHELATE [Concomitant]
     Active Substance: MAGNESIUM
     Indication: SUPPLEMENTATION THERAPY
     Route: 048
     Dates: start: 20180724
  44. TACROLIMUS. [Concomitant]
     Active Substance: TACROLIMUS
     Dosage: 0.5 MG, ONCE DAILY
     Route: 042
     Dates: start: 20180801, end: 20180801
  45. TACROLIMUS. [Concomitant]
     Active Substance: TACROLIMUS
     Dosage: 0.7 MG, ONCE DAILY
     Route: 042
     Dates: start: 20180812, end: 20180812
  46. TACROLIMUS. [Concomitant]
     Active Substance: TACROLIMUS
     Dosage: 0.6 MG, ONCE DAILY
     Route: 042
     Dates: start: 20180819, end: 20180819
  47. CYANOCOBALAMIN. [Concomitant]
     Active Substance: CYANOCOBALAMIN
     Indication: PRODUCT USED FOR UNKNOWN INDICATION
     Route: 042
     Dates: start: 20180726, end: 20180816
  48. ACYCLOVIR                          /00587301/ [Concomitant]
     Active Substance: ACYCLOVIR
     Indication: ANTIVIRAL TREATMENT
     Route: 042
     Dates: start: 20180730, end: 20180802
  49. HYDROXYPROPYL METHYLCELLULOSE [Concomitant]
     Active Substance: HYPROMELLOSES
     Indication: PRODUCT USED FOR UNKNOWN INDICATION
     Route: 047
  50. CLOBETASOL [Concomitant]
     Active Substance: CLOBETASOL
     Indication: DERMATOLOGIC EXAMINATION
     Dosage: 0.5 %, TWICE DAILY
     Route: 061
     Dates: start: 20180824, end: 20180825
  51. PROCHLORPERAZINE. [Concomitant]
     Active Substance: PROCHLORPERAZINE
     Indication: NAUSEA
  52. POTASSIUM CHLORIDE. [Concomitant]
     Active Substance: POTASSIUM CHLORIDE
     Dosage: 40 MEQ, EVERY 2 HOUR
     Route: 042
     Dates: start: 20180812, end: 20180812
  53. SALINE                             /00075401/ [Concomitant]
     Active Substance: SODIUM CHLORIDE
     Dosage: 1000 ML, ONCE
     Route: 042
     Dates: start: 20180815, end: 20180815
  54. SALINE                             /00075401/ [Concomitant]
     Active Substance: SODIUM CHLORIDE
     Dosage: 1000 ML, ONCE
     Route: 042
     Dates: start: 20180803, end: 20180803
  55. POTASSIUM CHLORIDE. [Concomitant]
     Active Substance: POTASSIUM CHLORIDE
     Dosage: 40 MEQ, ONCE
     Route: 048
     Dates: start: 20180806, end: 20180806
  56. FOLIC ACID. [Concomitant]
     Active Substance: FOLIC ACID
     Route: 048
     Dates: start: 20180801, end: 20180804
  57. ZOFRAN [Concomitant]
     Active Substance: ONDANSETRON HYDROCHLORIDE
     Indication: NAUSEA
  58. FUROSEMIDE. [Concomitant]
     Active Substance: FUROSEMIDE
     Indication: PRODUCT USED FOR UNKNOWN INDICATION
     Dosage: 20 MG, ONCE
     Route: 042
     Dates: start: 20180820, end: 20180820
  59. FUROSEMIDE. [Concomitant]
     Active Substance: FUROSEMIDE
     Dosage: 10 MG, ONCE
     Route: 042
     Dates: start: 20180821, end: 20180821
  60. FUROSEMIDE. [Concomitant]
     Active Substance: FUROSEMIDE
     Indication: PRODUCT USED FOR UNKNOWN INDICATION
     Dosage: 20 MG, ONCE
     Route: 042
     Dates: start: 20180811, end: 20180811
  61. FOLIC ACID. [Concomitant]
     Active Substance: FOLIC ACID
     Indication: SUPPLEMENTATION THERAPY
     Route: 048
     Dates: start: 20180727, end: 20180727
  62. FOLIC ACID. [Concomitant]
     Active Substance: FOLIC ACID
     Route: 048
     Dates: start: 20180729, end: 20180729
  63. MAGNESIUM AMINO ACID CHELATE [Concomitant]
     Active Substance: MAGNESIUM
     Route: 048
     Dates: start: 20180822, end: 20180825
  64. TACROLIMUS. [Concomitant]
     Active Substance: TACROLIMUS
     Dosage: 0.7 MG, ONCE DAILY
     Route: 042
     Dates: start: 20180730, end: 20180731
  65. PROCHLORPERAZINE. [Concomitant]
     Active Substance: PROCHLORPERAZINE
     Indication: ANTIEMETIC SUPPORTIVE CARE
     Route: 048
     Dates: start: 20180822, end: 20180825
  66. ISAVUCONAZOLE [Suspect]
     Active Substance: ISAVUCONAZOLE
     Route: 048
     Dates: start: 20180815
  67. ISAVUCONAZOLE [Suspect]
     Active Substance: ISAVUCONAZOLE
     Route: 048
     Dates: start: 20180822, end: 20180825
  68. POTASSIUM CHLORIDE. [Concomitant]
     Active Substance: POTASSIUM CHLORIDE
     Indication: PRODUCT USED FOR UNKNOWN INDICATION
     Dosage: 20 MEQ, EVRY 1 HOUR
     Route: 042
     Dates: start: 20180730, end: 20180730
  69. SALINE                             /00075401/ [Concomitant]
     Active Substance: SODIUM CHLORIDE
     Dosage: 500 ML, ONCE
     Route: 042
     Dates: start: 20180824, end: 20180824
  70. VANCOMYCIN [Concomitant]
     Active Substance: VANCOMYCIN
     Indication: PRODUCT USED FOR UNKNOWN INDICATION
     Dosage: 125 MG, ONCE
     Route: 048
     Dates: start: 20180821, end: 20180821
  71. METHYLPREDNISOLONE. [Concomitant]
     Active Substance: METHYLPREDNISOLONE
     Indication: PRODUCT USED FOR UNKNOWN INDICATION
     Dosage: 80 MG, ONCE
     Route: 042
     Dates: start: 20180815, end: 20180815
  72. POTASSIUM CHLORIDE. [Concomitant]
     Active Substance: POTASSIUM CHLORIDE
     Indication: PRODUCT USED FOR UNKNOWN INDICATION
     Dosage: 20 MEQ, ONCE
     Route: 048
     Dates: start: 20180803, end: 20180803
  73. LEUCOVORIN                         /00566701/ [Concomitant]
     Active Substance: LEUCOVORIN
     Indication: PRODUCT USED FOR UNKNOWN INDICATION
     Route: 042
  74. MAGNESIUM SULFATE. [Concomitant]
     Active Substance: MAGNESIUM SULFATE
     Indication: PRODUCT USED FOR UNKNOWN INDICATION
     Dosage: 2 G, ONCE
     Route: 042
     Dates: start: 20180802, end: 20180802
  75. FOLIC ACID. [Concomitant]
     Active Substance: FOLIC ACID
     Route: 048
     Dates: start: 20180822, end: 20180825
  76. ACETAMINOPHEN. [Concomitant]
     Active Substance: ACETAMINOPHEN
     Indication: PRODUCT USED FOR UNKNOWN INDICATION
     Dosage: 650 MG, ONCE
     Route: 048
     Dates: start: 20180725, end: 20180725
  77. TACROLIMUS. [Concomitant]
     Active Substance: TACROLIMUS
     Dosage: 0.5 MG, ONCE DAILY
     Route: 042
     Dates: start: 20180818, end: 20180818
  78. TACROLIMUS. [Concomitant]
     Active Substance: TACROLIMUS
     Route: 042
     Dates: start: 20180820, end: 20180820
  79. TACROLIMUS. [Concomitant]
     Active Substance: TACROLIMUS
     Route: 048
     Dates: start: 20180822, end: 20180825
  80. ACYCLOVIR                          /00587301/ [Concomitant]
     Active Substance: ACYCLOVIR
     Route: 048
     Dates: start: 20180802, end: 20180825
  81. SUCRALFATE. [Concomitant]
     Active Substance: SUCRALFATE
     Indication: REFLUX GASTRITIS
     Dosage: 1G/10ML, ONCE DAILY
     Route: 048
     Dates: start: 20180808
  82. NYSTATIN. [Concomitant]
     Active Substance: NYSTATIN
     Indication: PRODUCT USED FOR UNKNOWN INDICATION
     Dosage: 100,000 UNITS/GRAM, EVERY 12 HOURS
     Route: 048
     Dates: start: 20180816, end: 20180822
  83. TRIAMCINOLONE [Concomitant]
     Active Substance: TRIAMCINOLONE
     Indication: DERMATOLOGIC EXAMINATION
     Dosage: UNK UNK, TWICE DAILY
     Route: 061
     Dates: start: 20180823, end: 20180825
  84. PENTAMIDINE [Concomitant]
     Active Substance: PENTAMIDINE
     Indication: PRODUCT USED FOR UNKNOWN INDICATION
     Dosage: 300 MG, ONCE
     Route: 065
     Dates: start: 20180822, end: 20180822
  85. METHYLPREDNISOLONE. [Concomitant]
     Active Substance: METHYLPREDNISOLONE
     Dosage: 80 MG, ONCE
     Route: 042
     Dates: start: 20180818, end: 20180818
  86. POTASSIUM PHOSPHATE [Concomitant]
     Active Substance: POTASSIUM PHOSPHATE
     Indication: PRODUCT USED FOR UNKNOWN INDICATION
     Dosage: 15 MMOL, ONCE
     Route: 042
     Dates: start: 20180814, end: 20180814
  87. POTASSIUM PHOSPHATE [Concomitant]
     Active Substance: POTASSIUM PHOSPHATE
     Dosage: 15 MMOL, ONCE
     Route: 042
     Dates: start: 20180815, end: 20180815
  88. VANCOMYCIN [Concomitant]
     Active Substance: VANCOMYCIN
     Route: 065
     Dates: start: 20180723, end: 20180802
  89. CIPROFLOXACIN. [Concomitant]
     Active Substance: CIPROFLOXACIN
     Indication: PRODUCT USED FOR UNKNOWN INDICATION
     Route: 048
     Dates: start: 20180723, end: 20180730
  90. PHYTONADIONE. [Concomitant]
     Active Substance: PHYTONADIONE
     Indication: PRODUCT USED FOR UNKNOWN INDICATION
     Route: 048
     Dates: start: 20180723, end: 20180820
  91. TACROLIMUS. [Concomitant]
     Active Substance: TACROLIMUS
     Dosage: 0.4 MG, ONCE DAILY
     Route: 042
     Dates: start: 20180809, end: 20180809
  92. HYDROXYZINE [Concomitant]
     Active Substance: HYDROXYZINE HYDROCHLORIDE
     Indication: PRODUCT USED FOR UNKNOWN INDICATION
     Route: 048
     Dates: start: 20180730, end: 20180816
  93. ZOFRAN [Concomitant]
     Active Substance: ONDANSETRON HYDROCHLORIDE
     Indication: ANTIEMETIC SUPPORTIVE CARE
     Route: 048
  94. ZOFRAN [Concomitant]
     Active Substance: ONDANSETRON HYDROCHLORIDE
     Indication: ANTIEMETIC SUPPORTIVE CARE

REACTIONS (10)
  - Raoultella ornithinolytica infection [Recovering/Resolving]
  - Metabolic acidosis [Recovering/Resolving]
  - Vomiting [Recovering/Resolving]
  - Bacteraemia [Recovering/Resolving]
  - Sepsis [Unknown]
  - Abdominal distension [Unknown]
  - Hypotension [Not Recovered/Not Resolved]
  - Diarrhoea [Not Recovered/Not Resolved]
  - Nausea [Recovering/Resolving]
  - Respiratory failure [Fatal]

NARRATIVE: CASE EVENT DATE: 20180825
